FAERS Safety Report 9856301 (Version 1)
Quarter: 2014Q1

REPORT INFORMATION
  Report Type: Spontaneous
  Country: GB (occurrence: GB)
  Receive Date: 20140130
  Receipt Date: 20140130
  Transmission Date: 20141002
  Serious: Yes (Other)
  Sender: FDA-Public Use
  Company Number: PHFR2014GB001018

PATIENT
  Sex: Male

DRUGS (8)
  1. VOLTAROL [Suspect]
     Dosage: UNK UKN, UNK
  2. DOCETAXEL [Concomitant]
     Dosage: UNK UKN, UNK
  3. PREDNISOLONE [Concomitant]
     Dosage: UNK UKN, UNK
  4. SIMVASTATIN [Concomitant]
     Dosage: UNK UKN, UNK
  5. TRAMADOL [Concomitant]
     Dosage: UNK UKN, UNK
  6. PROSTAP [Concomitant]
     Dosage: UNK UKN, UNK
  7. LATANOPROST [Concomitant]
     Dosage: UNK UKN, UNK
  8. BRINZOLAMIDE [Concomitant]
     Dosage: UNK UKN, UNK

REACTIONS (2)
  - Thermal burn [Not Recovered/Not Resolved]
  - Ulcer [Not Recovered/Not Resolved]
